FAERS Safety Report 9981894 (Version 1)
Quarter: 2014Q1

REPORT INFORMATION
  Report Type: Report from Study
  Country: US (occurrence: US)
  Receive Date: 20140307
  Receipt Date: 20140307
  Transmission Date: 20141002
  Serious: No
  Sender: FDA-Public Use
  Company Number: US-ABBVIE-13P-163-1178418-00

PATIENT
  Age: 83 Year
  Sex: Female
  Weight: 59.93 kg

DRUGS (9)
  1. HUMIRA [Suspect]
     Indication: PSORIASIS
     Dates: start: 20131205, end: 20131205
  2. HUMIRA [Suspect]
  3. BISOPROLOL [Concomitant]
     Indication: HYPERTENSION
  4. LISINOPRIL [Concomitant]
     Indication: HYPERTENSION
  5. SIMVASTATIN [Concomitant]
     Indication: BLOOD CHOLESTEROL INCREASED
  6. AMLODIPINE [Concomitant]
     Indication: ARTHRITIS
  7. MELOXICAM [Concomitant]
     Indication: ARTHRITIS
  8. CALCITRIOL [Concomitant]
     Indication: PSORIASIS
     Dosage: 3 MG APPLY AM AND PM TO AREAS OF PSORIASIS
  9. CLOBETASOL PROPIONATE [Concomitant]
     Indication: PSORIASIS
     Dosage: FOAM, APPLY AM AND PM TO AREAS OF PSORIASIS

REACTIONS (1)
  - Injection site bruising [Recovering/Resolving]
